FAERS Safety Report 15548122 (Version 2)
Quarter: 2018Q4

REPORT INFORMATION
  Report Type: Spontaneous
  Country: US (occurrence: US)
  Receive Date: 20181024
  Receipt Date: 20181024
  Transmission Date: 20190205
  Serious: Yes (Hospitalization)
  Sender: FDA-Public Use
  Company Number: US-GILEAD-2018-0370269

PATIENT
  Age: 79 Year
  Sex: Female

DRUGS (2)
  1. RANEXA [Suspect]
     Active Substance: RANOLAZINE
     Indication: PRODUCT USED FOR UNKNOWN INDICATION
     Route: 065
  2. ARICEPT [Suspect]
     Active Substance: DONEPEZIL HYDROCHLORIDE
     Indication: PRODUCT USED FOR UNKNOWN INDICATION
     Route: 065

REACTIONS (9)
  - Vomiting [Unknown]
  - Sinus bradycardia [Recovering/Resolving]
  - Sluggishness [Unknown]
  - Memory impairment [Unknown]
  - Fatigue [Unknown]
  - Heart rate abnormal [Recovering/Resolving]
  - Confusional state [Unknown]
  - Asthenia [Unknown]
  - Intentional product use issue [Recovered/Resolved]
